FAERS Safety Report 5341164-5 (Version None)
Quarter: 2007Q2

REPORT INFORMATION
  Report Type: 
  Country: None (occurrence: None)
  Receive Date: 20070530
  Receipt Date: 20070518
  Transmission Date: 20071010
  Serious: Yes (Death, Hospitalization)
  Sender: FDA-Public Use
  Company Number: 2007-01575

PATIENT
  Age: 55 Year
  Sex: Male

DRUGS (2)
  1. VELCADE [Suspect]
     Indication: MULTIPLE MYELOMA
     Dates: start: 20060101, end: 20060101
  2. DEXAMETHASONE 0.5MG TAB [Concomitant]

REACTIONS (12)
  - BACK PAIN [None]
  - BLOOD ALBUMIN DECREASED [None]
  - CONFUSIONAL STATE [None]
  - CONVULSION [None]
  - DEHYDRATION [None]
  - DISEASE PROGRESSION [None]
  - HYPERCALCAEMIA [None]
  - LOSS OF CONSCIOUSNESS [None]
  - MALIGNANT NEOPLASM PROGRESSION [None]
  - MENTAL STATUS CHANGES [None]
  - MULTIPLE MYELOMA [None]
  - SPINAL CORD COMPRESSION [None]
